FAERS Safety Report 6862235-8 (Version None)
Quarter: 2010Q3

REPORT INFORMATION
  Report Type: 
  Country: None (occurrence: None)
  Receive Date: 20100719
  Receipt Date: 20100704
  Transmission Date: 20110219
  Serious: Yes (Other)
  Sender: FDA-Public Use
  Company Number: AUR-APL-2010-01795

PATIENT
  Age: 40 Year
  Sex: Male
  Weight: 77.11 kg

DRUGS (2)
  1. SIMVASTATIN [Suspect]
     Indication: BLOOD CHOLESTEROL
  2. LIPITOR [Suspect]
     Indication: BLOOD CHOLESTEROL

REACTIONS (1)
  - COGNITIVE DISORDER [None]
